FAERS Safety Report 24693202 (Version 2)
Quarter: 2025Q1

REPORT INFORMATION
  Report Type: Spontaneous
  Country: ES (occurrence: ES)
  Receive Date: 20241203
  Receipt Date: 20250205
  Transmission Date: 20250408
  Serious: Yes (Death, Life-Threatening, Hospitalization, Other)
  Sender: GILEAD
  Company Number: ES-GILEAD-2024-0695524

PATIENT
  Age: 57 Year
  Sex: Male
  Weight: 120 kg

DRUGS (1)
  1. TECARTUS [Suspect]
     Active Substance: BREXUCABTAGENE AUTOLEUCEL
     Indication: Product used for unknown indication
     Route: 042
     Dates: start: 20241015, end: 20241015

REACTIONS (12)
  - Pancytopenia [Fatal]
  - Upper gastrointestinal haemorrhage [Fatal]
  - Cardio-respiratory arrest [Recovered/Resolved]
  - Immune effector cell-associated neurotoxicity syndrome [Recovered/Resolved]
  - Hemiparesis [Unknown]
  - Loss of consciousness [Unknown]
  - Klebsiella infection [Unknown]
  - Cytomegalovirus infection reactivation [Unknown]
  - Gastric haemorrhage [Unknown]
  - Febrile neutropenia [Unknown]
  - Fall [Unknown]
  - Pleural effusion [Unknown]

NARRATIVE: CASE EVENT DATE: 20241015
